FAERS Safety Report 9395791 (Version 1)
Quarter: 2013Q3

REPORT INFORMATION
  Report Type: Spontaneous
  Country: CA (occurrence: CA)
  Receive Date: 20130711
  Receipt Date: 20130711
  Transmission Date: 20140515
  Serious: Yes (Death, Hospitalization)
  Sender: FDA-Public Use
  Company Number: CA-GLAXOSMITHKLINE-A0805707A

PATIENT
  Age: 46 Year
  Sex: Female

DRUGS (1)
  1. TYKERB [Suspect]
     Indication: PRODUCT USED FOR UNKNOWN INDICATION
     Dosage: 1250MG UNKNOWN
     Route: 048
     Dates: start: 20090801

REACTIONS (3)
  - Coma [Unknown]
  - Death [Fatal]
  - Diarrhoea [Not Recovered/Not Resolved]
